FAERS Safety Report 5802473-6 (Version None)
Quarter: 2008Q3

REPORT INFORMATION
  Report Type: 
  Country: None (occurrence: None)
  Receive Date: 20080708
  Receipt Date: 20080627
  Transmission Date: 20090109
  Serious: Yes (Other)
  Sender: FDA-Public Use
  Company Number: US-BAYER-200824526NA

PATIENT
  Age: 66 Year
  Sex: Male
  Weight: 84 kg

DRUGS (2)
  1. AVELOX [Suspect]
     Indication: BRONCHITIS
     Dosage: TOTAL DAILY DOSE: 400 MG  UNIT DOSE: 400 MG
     Route: 048
     Dates: start: 20080513, end: 20080513
  2. ACIPHEX [Concomitant]

REACTIONS (9)
  - ANAPHYLACTIC REACTION [None]
  - ASTHENIA [None]
  - CHEST DISCOMFORT [None]
  - ERYTHEMA [None]
  - GENERALISED ERYTHEMA [None]
  - PARAESTHESIA [None]
  - PRURITUS GENERALISED [None]
  - SENSATION OF FOREIGN BODY [None]
  - THROAT TIGHTNESS [None]
